FAERS Safety Report 21493330 (Version 1)
Quarter: 2022Q4

REPORT INFORMATION
  Report Type: Spontaneous
  Country: US (occurrence: US)
  Receive Date: 20221021
  Receipt Date: 20221021
  Transmission Date: 20230113
  Serious: No
  Sender: FDA-Public Use
  Company Number: US-SA-SAC20221017000667

PATIENT
  Age: 15 Year
  Sex: Female

DRUGS (1)
  1. FABRAZYME [Suspect]
     Active Substance: AGALSIDASE BETA
     Indication: Fabry^s disease
     Dosage: 34 MG, QOW (14 MG PLUS 20 MG)
     Dates: start: 20220701

REACTIONS (1)
  - Peripheral nerve decompression [Unknown]

NARRATIVE: CASE EVENT DATE: 20221006
